FAERS Safety Report 8019015-X (Version None)
Quarter: 2012Q1

REPORT INFORMATION
  Report Type: 
  Country: None (occurrence: None)
  Receive Date: 20120103
  Receipt Date: 20111222
  Transmission Date: 20120608
  Serious: Yes (Hospitalization)
  Sender: FDA-Public Use
  Company Number: DE-ELI_LILLY_AND_COMPANY-DE201112002548

PATIENT
  Age: 58 Year
  Sex: Female
  Weight: 98 kg

DRUGS (3)
  1. OLANZAPINE [Suspect]
     Indication: SCHIZOPHRENIA
     Dosage: 20 MG, QD
     Route: 048
     Dates: start: 20010101
  2. METAMIZOL [Concomitant]
     Dosage: 20 DF, TID
  3. LEVOTHYROXINE SODIUM [Concomitant]
     Dosage: 25 MG, QD

REACTIONS (4)
  - BODY MASS INDEX INCREASED [None]
  - TOTAL CHOLESTEROL/HDL RATIO INCREASED [None]
  - OBSESSIVE-COMPULSIVE DISORDER [None]
  - LOW DENSITY LIPOPROTEIN INCREASED [None]
